FAERS Safety Report 7610305-9 (Version None)
Quarter: 2011Q3

REPORT INFORMATION
  Report Type: 
  Country: None (occurrence: None)
  Receive Date: 20110713
  Receipt Date: 20110713
  Transmission Date: 20111222
  Serious: Yes (Life-Threatening)
  Sender: FDA-Public Use
  Company Number: None

PATIENT
  Age: 44 Year
  Sex: Female
  Weight: 131.0895 kg

DRUGS (8)
  1. LEBATELOL [Concomitant]
  2. SIMVASTATIN [Concomitant]
  3. LISINOPRIL [Concomitant]
  4. FENTANYL [Suspect]
     Indication: PAIN
  5. AMLODIPINE [Concomitant]
  6. VALIAM [Concomitant]
  7. VITAMIN D [Concomitant]
  8. INSULIN [Concomitant]

REACTIONS (2)
  - DYSPNOEA [None]
  - APNOEA [None]
